FAERS Safety Report 17591047 (Version 1)
Quarter: 2020Q1

REPORT INFORMATION
  Report Type: Spontaneous
  Country: US (occurrence: US)
  Receive Date: 20200327
  Receipt Date: 20200327
  Transmission Date: 20200409
  Serious: No
  Sender: FDA-Public Use
  Company Number: US-TEVA-2020-US-1211169

PATIENT
  Sex: Male

DRUGS (2)
  1. FENTANYL CITRATE. [Suspect]
     Active Substance: FENTANYL CITRATE
     Dosage: 400 MCG
     Route: 048
     Dates: start: 202002
  2. FENTANYL CITRATE. [Suspect]
     Active Substance: FENTANYL CITRATE
     Indication: PAIN
     Dosage: 200 MCG
     Route: 048
     Dates: start: 202002

REACTIONS (3)
  - Product solubility abnormal [Unknown]
  - Product physical issue [Unknown]
  - Drug ineffective [Unknown]
